FAERS Safety Report 22650770 (Version 1)
Quarter: 2023Q2

REPORT INFORMATION
  Report Type: Spontaneous
  Country: BE (occurrence: BE)
  Receive Date: 20230628
  Receipt Date: 20230628
  Transmission Date: 20230721
  Serious: Yes (Hospitalization, Other)
  Sender: FDA-Public Use
  Company Number: BE-SUN PHARMACEUTICAL INDUSTRIES LTD-2023RR-395879

PATIENT
  Age: 50 Year
  Sex: Male

DRUGS (10)
  1. IBUPROFEN [Suspect]
     Active Substance: IBUPROFEN
     Indication: Pyrexia
     Dosage: 400 MILLIGRAM
     Route: 065
  2. PANTOPRAZOLE [Suspect]
     Active Substance: PANTOPRAZOLE
     Indication: Product used for unknown indication
     Dosage: 40 MILLIGRAM, QD
     Route: 065
  3. COTRIMOXAZOLE [Suspect]
     Active Substance: SULFAMETHOXAZOLE\TRIMETHOPRIM
     Indication: Metastatic malignant melanoma
     Dosage: 800 MG/160 MG THREE TIMES PER WEEK
     Route: 065
  4. NIVOLUMAB [Suspect]
     Active Substance: NIVOLUMAB
     Indication: Malignant melanoma
     Dosage: UNK
     Route: 065
     Dates: start: 202007
  5. DABRAFENIB [Suspect]
     Active Substance: DABRAFENIB
     Indication: Metastatic malignant melanoma
     Dosage: 150 MILLIGRAM, BID
     Route: 065
     Dates: start: 202103
  6. DABRAFENIB [Suspect]
     Active Substance: DABRAFENIB
     Dosage: 75 MILLIGRAM
     Route: 065
  7. DABRAFENIB [Suspect]
     Active Substance: DABRAFENIB
     Dosage: 100 MILLIGRAM, BID
     Route: 065
  8. TRAMETINIB [Suspect]
     Active Substance: TRAMETINIB
     Indication: Metastatic malignant melanoma
     Dosage: 2 MILLIGRAM, QD
     Route: 065
  9. TRAMETINIB [Suspect]
     Active Substance: TRAMETINIB
     Dosage: 1 MILLIGRAM, DAILY
     Route: 065
  10. TRAMETINIB [Suspect]
     Active Substance: TRAMETINIB
     Dosage: 1.5 MILLIGRAM, DAILY
     Route: 065

REACTIONS (1)
  - Tubulointerstitial nephritis [Recovering/Resolving]
